FAERS Safety Report 8585911-8 (Version None)
Quarter: 2012Q3

REPORT INFORMATION
  Report Type: 
  Country: None (occurrence: None)
  Receive Date: 20120810
  Receipt Date: 20120802
  Transmission Date: 20120928
  Serious: Yes (Other)
  Sender: FDA-Public Use
  Company Number: US-ASTRAZENECA-2010SE11421

PATIENT
  Age: 88 Year
  Sex: Female

DRUGS (5)
  1. NEXIUM [Suspect]
     Route: 048
  2. NAPROXEN (ALEVE) [Concomitant]
  3. SYMBICORT [Suspect]
     Dosage: 160/4.5 MCG UNKNOWN
     Route: 055
  4. SYMBICORT [Suspect]
     Dosage: 80/4.5 MCG UNKNOWN
     Route: 055
  5. ADVIL [Concomitant]

REACTIONS (8)
  - FALL [None]
  - ANKLE FRACTURE [None]
  - GASTROOESOPHAGEAL REFLUX DISEASE [None]
  - MALAISE [None]
  - DRUG EFFECT INCREASED [None]
  - FEELING ABNORMAL [None]
  - DYSPHONIA [None]
  - CHRONIC OBSTRUCTIVE PULMONARY DISEASE [None]
